FAERS Safety Report 16703803 (Version 2)
Quarter: 2019Q3

REPORT INFORMATION
  Report Type: Spontaneous
  Country: BR (occurrence: BR)
  Receive Date: 20190814
  Receipt Date: 20190906
  Transmission Date: 20191004
  Serious: No
  Sender: FDA-Public Use
  Company Number: BR-GLAXOSMITHKLINE-BR2019AMR144520

PATIENT
  Age: 6 Year
  Sex: Female

DRUGS (1)
  1. ZINNAT [Suspect]
     Active Substance: CEFUROXIME
     Indication: EAR INFECTION
     Dosage: 5 ML, UNK

REACTIONS (2)
  - Product complaint [Unknown]
  - Product dose omission [Unknown]
